FAERS Safety Report 12843267 (Version 1)
Quarter: 2016Q4

REPORT INFORMATION
  Report Type: Spontaneous
  Country: CN (occurrence: CN)
  Receive Date: 20161013
  Receipt Date: 20161013
  Transmission Date: 20170207
  Serious: Yes (Other)
  Sender: FDA-Public Use
  Company Number: CN-BAYER-2016-187756

PATIENT
  Age: 13 Year
  Sex: Male

DRUGS (3)
  1. KOGENATE FS [Suspect]
     Active Substance: ANTIHEMOPHILIC FACTOR, HUMAN RECOMBINANT
     Indication: FACTOR VIII DEFICIENCY
     Dosage: TREATMENT
     Route: 042
  2. KOGENATE FS [Suspect]
     Active Substance: ANTIHEMOPHILIC FACTOR, HUMAN RECOMBINANT
     Indication: FACTOR VIII DEFICIENCY
     Dosage: TREATMENT
     Route: 042
  3. KOGENATE FS [Suspect]
     Active Substance: ANTIHEMOPHILIC FACTOR, HUMAN RECOMBINANT
     Indication: FACTOR VIII DEFICIENCY
     Dosage: 3-4* 250 IU
     Route: 042
     Dates: start: 20140513, end: 20150930

REACTIONS (20)
  - Soft tissue haemorrhage [None]
  - Soft tissue haemorrhage [None]
  - Soft tissue haemorrhage [None]
  - Soft tissue haemorrhage [None]
  - Haemarthrosis [None]
  - Haemarthrosis [None]
  - Synovial disorder [None]
  - Soft tissue haemorrhage [None]
  - Soft tissue haemorrhage [None]
  - Soft tissue haemorrhage [None]
  - Soft tissue haemorrhage [None]
  - Soft tissue haemorrhage [None]
  - Soft tissue haemorrhage [None]
  - Haemarthrosis [None]
  - Soft tissue haemorrhage [None]
  - Soft tissue haemorrhage [None]
  - Soft tissue haemorrhage [None]
  - Soft tissue haemorrhage [None]
  - Synovial disorder [None]
  - Soft tissue haemorrhage [None]

NARRATIVE: CASE EVENT DATE: 20140513
